FAERS Safety Report 19431979 (Version 1)
Quarter: 2021Q2

REPORT INFORMATION
  Report Type: Report from Study
  Country: US (occurrence: US)
  Receive Date: 20210618
  Receipt Date: 20210618
  Transmission Date: 20210717
  Serious: Yes (Hospitalization, Other)
  Sender: FDA-Public Use
  Company Number: US-GILEAD-2021-0536383

PATIENT
  Age: 32 Year
  Sex: Female

DRUGS (3)
  1. CEFPODOXIME [Concomitant]
     Active Substance: CEFPODOXIME
  2. SOFOSBUVIR W/VELPATASVIR [Suspect]
     Active Substance: SOFOSBUVIR\VELPATASVIR
     Indication: HEPATITIS C
     Route: 065
  3. CEFTRIAXONE. [Concomitant]
     Active Substance: CEFTRIAXONE

REACTIONS (4)
  - Flank pain [Recovered/Resolved]
  - Pyrexia [Recovered/Resolved]
  - Pyelonephritis [Recovering/Resolving]
  - Maternal exposure during pregnancy [Not Recovered/Not Resolved]
